FAERS Safety Report 4827900-2 (Version None)
Quarter: 2005Q4

REPORT INFORMATION
  Report Type: 
  Country: None (occurrence: None)
  Receive Date: 20051114
  Receipt Date: 20051114
  Transmission Date: 20060501
  Serious: Yes (Death)
  Sender: FDA-Public Use
  Company Number: None

PATIENT
  Age: 64 Year
  Sex: Male
  Weight: 58.9676 kg

DRUGS (2)
  1. TAXOL [Suspect]
     Indication: CORONARY ARTERY STENOSIS
  2. CORDIS VELOCITY CARDIAC STENT    2.75X13MM      CORDIS CORPORATION [Suspect]

REACTIONS (5)
  - BLOOD PRESSURE DECREASED [None]
  - DEVICE FAILURE [None]
  - HEART RATE DECREASED [None]
  - PAIN IN EXTREMITY [None]
  - POST PROCEDURAL COMPLICATION [None]
